FAERS Safety Report 7535837-3 (Version None)
Quarter: 2011Q2

REPORT INFORMATION
  Report Type: 
  Country: None (occurrence: None)
  Receive Date: 20110602
  Receipt Date: 20110523
  Transmission Date: 20111010
  Serious: Yes (Death, Hospitalization)
  Sender: FDA-Public Use
  Company Number: 2009AC000379

PATIENT
  Age: 82 Year
  Sex: Male

DRUGS (12)
  1. DIGOXIN [Suspect]
     Indication: ARRHYTHMIA
     Dosage: 0.25 MG;QD;PO
     Route: 048
     Dates: start: 20070626, end: 20070723
  2. LEVOXYL [Concomitant]
  3. ATENOLOL [Concomitant]
  4. FUROSEMIDE [Concomitant]
  5. ISOSORBIDE [Concomitant]
  6. POTASSIUM [Concomitant]
  7. DUONEB [Concomitant]
  8. LOVASTATIN [Concomitant]
  9. FLOMAX [Concomitant]
  10. WARFARIN SODIUM [Concomitant]
  11. ASPIRIN [Concomitant]
  12. FOSAMAX [Concomitant]

REACTIONS (18)
  - OEDEMA PERIPHERAL [None]
  - PAIN [None]
  - UNEVALUABLE EVENT [None]
  - EMOTIONAL DISORDER [None]
  - CAROTID ARTERY STENOSIS [None]
  - OVERDOSE [None]
  - VENTRICULAR FIBRILLATION [None]
  - ARTERIOSCLEROSIS [None]
  - ECONOMIC PROBLEM [None]
  - TOXICITY TO VARIOUS AGENTS [None]
  - PRESYNCOPE [None]
  - MYOCARDIAL INFARCTION [None]
  - CORONARY ARTERY DISEASE [None]
  - ATRIAL FIBRILLATION [None]
  - SOCIAL AVOIDANT BEHAVIOUR [None]
  - MULTIPLE INJURIES [None]
  - LOSS OF EMPLOYMENT [None]
  - TACHYCARDIA [None]
